FAERS Safety Report 15978951 (Version 1)
Quarter: 2019Q1

REPORT INFORMATION
  Report Type: Spontaneous
  Country: US (occurrence: US)
  Receive Date: 20190219
  Receipt Date: 20190219
  Transmission Date: 20190418
  Serious: No
  Sender: FDA-Public Use
  Company Number: US-BAUSCH-BL-2019-003553

PATIENT
  Age: 74 Year
  Sex: Female
  Weight: 99.88 kg

DRUGS (1)
  1. RETIN-A MICRO [Suspect]
     Active Substance: TRETINOIN
     Indication: ACTINIC KERATOSIS
     Route: 061
     Dates: end: 2018

REACTIONS (6)
  - Asthenia [Unknown]
  - Body height decreased [Unknown]
  - Gait inability [Unknown]
  - Fall [Unknown]
  - Joint injury [Not Recovered/Not Resolved]
  - Weight increased [Unknown]

NARRATIVE: CASE EVENT DATE: 201812
